FAERS Safety Report 16291081 (Version 1)
Quarter: 2019Q2

REPORT INFORMATION
  Report Type: Spontaneous
  Country: US (occurrence: US)
  Receive Date: 20190509
  Receipt Date: 20190509
  Transmission Date: 20190711
  Serious: No
  Sender: FDA-Public Use
  Company Number: US-PFIZER INC-2019195178

PATIENT
  Age: 72 Year
  Sex: Female

DRUGS (12)
  1. FLUTICASONE. [Suspect]
     Active Substance: FLUTICASONE
     Dosage: UNK
  2. SULFAMETHOXAZOLE/TRIMETHOPRIM [Suspect]
     Active Substance: SULFAMETHOXAZOLE\TRIMETHOPRIM
     Dosage: UNK
  3. ACETAMINOPHEN;HYDROCODONE [Suspect]
     Active Substance: ACETAMINOPHEN\HYDROCODONE
     Dosage: UNK
  4. BENZYLPENICILLIN POTASSIUM [Suspect]
     Active Substance: PENICILLIN G POTASSIUM
     Dosage: UNK
  5. EZETIMIBE. [Suspect]
     Active Substance: EZETIMIBE
     Dosage: UNK
  6. IPRATROPIUM BROMIDE HFA [Suspect]
     Active Substance: IPRATROPIUM BROMIDE
     Dosage: UNK
  7. ISOSORBIDE NITRATE [Suspect]
     Active Substance: ISOSORBIDE MONONITRATE
     Dosage: UNK
  8. ERYTHROMYCIN. [Suspect]
     Active Substance: ERYTHROMYCIN
     Dosage: UNK
  9. LEVOFLOXACIN. [Suspect]
     Active Substance: LEVOFLOXACIN
     Dosage: UNK
  10. MOXIFLOXACIN. [Suspect]
     Active Substance: MOXIFLOXACIN
     Dosage: UNK
  11. AZELASTINE HCL [Suspect]
     Active Substance: AZELASTINE HYDROCHLORIDE
     Dosage: UNK
  12. RANOLAZINE. [Suspect]
     Active Substance: RANOLAZINE
     Dosage: UNK

REACTIONS (1)
  - Drug hypersensitivity [Unknown]
